FAERS Safety Report 12525367 (Version 2)
Quarter: 2016Q4

REPORT INFORMATION
  Report Type: Spontaneous
  Country: IT (occurrence: IT)
  Receive Date: 20160704
  Receipt Date: 20161005
  Transmission Date: 20170207
  Serious: Yes (Hospitalization)
  Sender: FDA-Public Use
  Company Number: ALCN2016IT004472

PATIENT
  Age: 80 Year
  Sex: Male
  Weight: 72 kg

DRUGS (2)
  1. ZYLORIC [Interacting]
     Active Substance: ALLOPURINOL
     Indication: HYPERURICAEMIA
     Dosage: 1 DF, QD
     Route: 048
     Dates: start: 20160510, end: 20160601
  2. NEVANAC [Suspect]
     Active Substance: NEPAFENAC
     Indication: ANTIINFLAMMATORY THERAPY
     Dosage: 2 GTT, QD
     Route: 047
     Dates: start: 20160520, end: 20160601

REACTIONS (4)
  - Erythema [Recovered/Resolved]
  - Eosinophilia [Recovered/Resolved]
  - Rash pustular [Recovered/Resolved]
  - Hyperpyrexia [Recovered/Resolved]

NARRATIVE: CASE EVENT DATE: 20160601
